FAERS Safety Report 9232809 (Version 1)
Quarter: 2013Q2

REPORT INFORMATION
  Report Type: Spontaneous
  Country: ES (occurrence: ES)
  Receive Date: 20130416
  Receipt Date: 20130416
  Transmission Date: 20140414
  Serious: Yes (Hospitalization)
  Sender: FDA-Public Use
  Company Number: ES-JNJFOC-20130406402

PATIENT
  Age: 39 Year
  Sex: Male

DRUGS (8)
  1. PROGRAF [Suspect]
     Indication: RENAL TRANSPLANT
     Route: 048
     Dates: start: 20120629
  2. ITRACONAZOLE [Suspect]
     Indication: RENAL TRANSPLANT
     Route: 048
     Dates: start: 20120625
  3. PREDNISONE [Suspect]
     Indication: RENAL TRANSPLANT
     Route: 048
     Dates: start: 20120625
  4. CELLCEPT [Suspect]
     Indication: RENAL TRANSPLANT
     Route: 048
     Dates: start: 20120625, end: 20121115
  5. VALCYTE [Suspect]
     Indication: ANTIVIRAL PROPHYLAXIS
     Route: 048
     Dates: start: 20120629, end: 20121115
  6. OMEPRAZOLE [Concomitant]
     Route: 065
     Dates: start: 20120625
  7. DARBEPOETIN ALFA [Concomitant]
     Route: 065
     Dates: start: 20120625
  8. SEPTRIN [Concomitant]
     Dosage: 1 DF EVERY TWO DAYS
     Route: 065
     Dates: start: 20120625

REACTIONS (2)
  - Neutropenia [Unknown]
  - Asthenia [Unknown]
